FAERS Safety Report 15771647 (Version 1)
Quarter: 2018Q4

REPORT INFORMATION
  Report Type: Spontaneous
  Country: RU (occurrence: RU)
  Receive Date: 20181228
  Receipt Date: 20181228
  Transmission Date: 20190205
  Serious: Yes (Death, Hospitalization, Other)
  Sender: FDA-Public Use
  Company Number: IND-RU-009507513-1812RUS010628

PATIENT
  Age: 60 Year
  Sex: Male

DRUGS (2)
  1. KETOPROFEN. [Suspect]
     Active Substance: KETOPROFEN
     Indication: RIB FRACTURE
     Dosage: 100 MILLIGRAM, DAILY
  2. ARCOXIA [Suspect]
     Active Substance: ETORICOXIB
     Indication: RIB FRACTURE
     Dosage: 90 MILLIGRAM
     Route: 048

REACTIONS (8)
  - Peptic ulcer perforation [Unknown]
  - Cardiac failure acute [Fatal]
  - Sepsis [Fatal]
  - Gastrointestinal disorder [Unknown]
  - Peptic ulcer [Fatal]
  - Overdose [Fatal]
  - Peritonitis [Fatal]
  - Purulent discharge [Unknown]
